FAERS Safety Report 17188196 (Version 1)
Quarter: 2019Q4

REPORT INFORMATION
  Report Type: Spontaneous
  Country: US (occurrence: US)
  Receive Date: 20191221
  Receipt Date: 20191221
  Transmission Date: 20200122
  Serious: Yes (Hospitalization)
  Sender: FDA-Public Use
  Company Number: US-SPROUT PHARMACEUTICALS, INC.-2019SP000123

PATIENT
  Age: 56 Year
  Sex: Female
  Weight: 67.65 kg

DRUGS (2)
  1. ADDYI [Suspect]
     Active Substance: FLIBANSERIN
     Indication: LIBIDO DECREASED
     Route: 065
     Dates: start: 201911, end: 201912
  2. LEVOTHYROXINE. [Concomitant]
     Active Substance: LEVOTHYROXINE
     Indication: HYPOTHYROIDISM
     Route: 048

REACTIONS (4)
  - Chest pain [Unknown]
  - Asthenia [Unknown]
  - Product use in unapproved indication [Recovered/Resolved]
  - Blood pressure decreased [Recovered/Resolved]

NARRATIVE: CASE EVENT DATE: 201911
